FAERS Safety Report 6939277-7 (Version None)
Quarter: 2010Q3

REPORT INFORMATION
  Report Type: 
  Country: None (occurrence: None)
  Receive Date: 20100824
  Receipt Date: 20100810
  Transmission Date: 20110219
  Serious: Yes (Other)
  Sender: FDA-Public Use
  Company Number: US-JNJFOC-20100804093

PATIENT
  Age: 19 Year
  Sex: Female

DRUGS (1)
  1. INFLIXIMAB, RECOMBINANT [Suspect]
     Indication: COLITIS ULCERATIVE
     Dosage: TOOK FOR 2 YEARS BEFORE START OF THE EVENT
     Route: 042

REACTIONS (1)
  - INTERSTITIAL GRANULOMATOUS DERMATITIS [None]
